FAERS Safety Report 16313142 (Version 1)
Quarter: 2020Q3

REPORT INFORMATION
  Report Type: Spontaneous
  Country: US (occurrence: US)
  Receive Date: 20190515
  Receipt Date: 20190515
  Transmission Date: 20201105
  Serious: Yes (Hospitalization, Other)
  Sender: FDA-Public Use
  Company Number: US-TORRENT-00008660

PATIENT
  Age: 66 Year
  Sex: Male

DRUGS (2)
  1. CARBAMAZEPINE. [Suspect]
     Active Substance: CARBAMAZEPINE
     Indication: SEIZURE
     Dosage: UNKNOWN
  2. PHENAZOPYRIDINE. [Suspect]
     Active Substance: PHENAZOPYRIDINE
     Indication: DYSURIA
     Dosage: UNKNOWN

REACTIONS (5)
  - Agitation [Recovered/Resolved]
  - Urinary retention [Recovered/Resolved]
  - Dysuria [Unknown]
  - Delirium [Unknown]
  - Condition aggravated [Recovered/Resolved]
